FAERS Safety Report 18334791 (Version 3)
Quarter: 2020Q4

REPORT INFORMATION
  Report Type: Report from Study
  Country: US (occurrence: US)
  Receive Date: 20201001
  Receipt Date: 20201216
  Transmission Date: 20210113
  Serious: Yes (Other)
  Sender: FDA-Public Use
  Company Number: US-PFIZER INC-2020352532

PATIENT
  Age: 64 Year
  Sex: Female

DRUGS (3)
  1. IBRANCE [Suspect]
     Active Substance: PALBOCICLIB
     Dosage: 100 MG, CYCLIC, [DAILY TAKE ON DAYS 1- 14 OF 28 DAY CYCLE]
     Route: 048
     Dates: start: 20200909, end: 2020
  2. IBRANCE [Suspect]
     Active Substance: PALBOCICLIB
     Indication: BREAST CANCER FEMALE
     Dosage: 125 MG, CYCLIC, [125 MG X 21 DAYS, THEN OFF FOR 7 DAYS]
     Route: 048
     Dates: start: 20200729, end: 2020
  3. IBRANCE [Suspect]
     Active Substance: PALBOCICLIB
     Dosage: 75 MG, CYCLIC (1-14 OF 28 DAY CYCLE)
     Route: 048
     Dates: start: 20201023

REACTIONS (14)
  - Off label use [Unknown]
  - Throat irritation [Unknown]
  - Blood count abnormal [Unknown]
  - Headache [Not Recovered/Not Resolved]
  - Diarrhoea [Unknown]
  - Dyspnoea [Unknown]
  - Hot flush [Unknown]
  - Cough [Unknown]
  - White blood cell count decreased [Unknown]
  - Head discomfort [Unknown]
  - Myelosuppression [Unknown]
  - Fatigue [Unknown]
  - Epistaxis [Unknown]
  - Musculoskeletal stiffness [Unknown]

NARRATIVE: CASE EVENT DATE: 2020
